FAERS Safety Report 12427774 (Version 1)
Quarter: 2016Q2

REPORT INFORMATION
  Report Type: Spontaneous
  Country: US (occurrence: None)
  Receive Date: 20160601
  Receipt Date: 20160601
  Transmission Date: 20160815
  Serious: Yes (Other)
  Sender: FDA-Public Use
  Company Number: None

PATIENT
  Age: 39 Year
  Sex: Female
  Weight: 77.11 kg

DRUGS (16)
  1. XOPENEX [Concomitant]
     Active Substance: LEVALBUTEROL HYDROCHLORIDE
  2. VITAMIN B12 [Concomitant]
     Active Substance: CYANOCOBALAMIN
  3. COREG [Concomitant]
     Active Substance: CARVEDILOL
  4. XOLAIR [Suspect]
     Active Substance: OMALIZUMAB
     Indication: ASTHMA
     Dosage: EVERY FOUR WEEKS, INTO THE MUSCLE
     Route: 030
     Dates: start: 20160101
  5. PAXIL [Concomitant]
     Active Substance: PAROXETINE HYDROCHLORIDE
  6. ALLERGY SHOTS [Concomitant]
     Active Substance: UNSPECIFIED INGREDIENT
  7. IBUPROFEN. [Concomitant]
     Active Substance: IBUPROFEN
  8. POTASSIUM [Concomitant]
     Active Substance: POTASSIUM
  9. SINGULAIR [Concomitant]
     Active Substance: MONTELUKAST SODIUM
  10. XOLAIR [Concomitant]
     Active Substance: OMALIZUMAB
  11. SYMBICORT [Concomitant]
     Active Substance: BUDESONIDE\FORMOTEROL FUMARATE DIHYDRATE
  12. FLONASE [Concomitant]
     Active Substance: FLUTICASONE PROPIONATE
  13. VITAMIN D [Concomitant]
     Active Substance: CHOLECALCIFEROL
  14. IRON [Concomitant]
     Active Substance: IRON
  15. LASIX [Concomitant]
     Active Substance: FUROSEMIDE
  16. TOPAMAX [Concomitant]
     Active Substance: TOPIRAMATE

REACTIONS (7)
  - Arthralgia [None]
  - Muscle spasms [None]
  - Oedema peripheral [None]
  - Tachycardia [None]
  - Increased tendency to bruise [None]
  - Face oedema [None]
  - Respiratory tract infection [None]

NARRATIVE: CASE EVENT DATE: 20160510
